FAERS Safety Report 18520456 (Version 1)
Quarter: 2020Q4

REPORT INFORMATION
  Report Type: Spontaneous
  Country: JP (occurrence: JP)
  Receive Date: 20201118
  Receipt Date: 20201118
  Transmission Date: 20210114
  Serious: Yes (Other)
  Sender: FDA-Public Use
  Company Number: JP-SA-2020SA323737

PATIENT

DRUGS (2)
  1. LANTUS SOLOSTAR [Suspect]
     Active Substance: INSULIN GLARGINE
     Indication: DIABETES MELLITUS
     Dosage: 14 U, QD (ONCE A DAY IN THE MORNING)
     Route: 058
  2. NOVORAPID [Concomitant]
     Active Substance: INSULIN ASPART
     Indication: DIABETES MELLITUS
     Dosage: 14 U (IN THE EVENING)
     Route: 065

REACTIONS (6)
  - Peripheral arterial occlusive disease [Unknown]
  - Angina pectoris [Unknown]
  - Cellulitis [Unknown]
  - Dizziness [Unknown]
  - Neuropathy peripheral [Unknown]
  - Hypoglycaemia [Unknown]
